FAERS Safety Report 9524999 (Version 2)
Quarter: 2013Q3

REPORT INFORMATION
  Report Type: Report from Study
  Country: US (occurrence: US)
  Receive Date: 20130916
  Receipt Date: 20130927
  Transmission Date: 20140515
  Serious: Yes (Other)
  Sender: FDA-Public Use
  Company Number: US-ABBVIE-13P-163-1144110-00

PATIENT
  Age: 39 Year
  Sex: Female
  Weight: 71.28 kg

DRUGS (3)
  1. HUMIRA [Suspect]
     Indication: PSORIASIS
     Dates: start: 20130318, end: 20130827
  2. METHOTREXATE [Concomitant]
     Indication: PRODUCT USED FOR UNKNOWN INDICATION
  3. IBUPROFEN [Concomitant]
     Indication: PAIN

REACTIONS (3)
  - Bladder mass [Unknown]
  - Uterine cancer [Not Recovered/Not Resolved]
  - Pelvic pain [Unknown]
